FAERS Safety Report 20258045 (Version 2)
Quarter: 2022Q2

REPORT INFORMATION
  Report Type: Spontaneous
  Country: US (occurrence: US)
  Receive Date: 20211230
  Receipt Date: 20220511
  Transmission Date: 20220721
  Serious: No
  Sender: FDA-Public Use
  Company Number: US-PFIZER INC-202101309899

PATIENT
  Age: 72 Year
  Sex: Male

DRUGS (2)
  1. XELJANZ XR [Suspect]
     Active Substance: TOFACITINIB CITRATE
     Indication: Rheumatoid arthritis
     Dosage: 11 MG, 1X/DAY (ONCE A DAY)
     Route: 048
     Dates: start: 202107
  2. SULFASALAZINE [Concomitant]
     Active Substance: SULFASALAZINE
     Dosage: UNK
     Dates: end: 2022

REACTIONS (9)
  - Product dose omission in error [Unknown]
  - Frustration tolerance decreased [Unknown]
  - Gastrointestinal sounds abnormal [Unknown]
  - Diarrhoea [Unknown]
  - Acne [Unknown]
  - Nasopharyngitis [Unknown]
  - Bronchitis [Recovered/Resolved]
  - Anxiety [Unknown]
  - Discouragement [Unknown]

NARRATIVE: CASE EVENT DATE: 20210101
